FAERS Safety Report 5573332-1 (Version None)
Quarter: 2007Q4

REPORT INFORMATION
  Report Type: 
  Country: None (occurrence: None)
  Receive Date: 20071130
  Receipt Date: 20070430
  Transmission Date: 20080405
  Serious: Yes (Disabling)
  Sender: FDA-Public Use
  Company Number: WAES 0606USA03516

PATIENT
  Age: 53 Year
  Sex: Female

DRUGS (10)
  1. FOSAMAX [Suspect]
     Indication: OSTEOPOROSIS
     Dosage: 70 MG WKY PO
     Route: 048
     Dates: start: 20030513, end: 20060101
  2. CALTRATE [Concomitant]
  3. ASCORBIC ACID (+) VITAMIN B COMP [Concomitant]
  4. CALCIUM GLUCONATE [Concomitant]
  5. CALCIUM CITRATE (+) MAGNESIUM [Concomitant]
  6. CYCLOBENZAPRINE HCL [Concomitant]
  7. IBUPROFEN [Concomitant]
  8. VITAMIN B [Concomitant]
  9. VITAMIN E [Concomitant]
  10. VITAMINS [Concomitant]

REACTIONS (10)
  - DIVERTICULITIS [None]
  - FATIGUE [None]
  - GASTROOESOPHAGEAL REFLUX DISEASE [None]
  - HYPOAESTHESIA [None]
  - LEUKOCYTOSIS [None]
  - MUSCLE SPASMS [None]
  - OSTEONECROSIS [None]
  - SINUSITIS [None]
  - UPPER RESPIRATORY TRACT INFECTION [None]
  - VERTIGO [None]
